FAERS Safety Report 21867943 (Version 2)
Quarter: 2023Q1

REPORT INFORMATION
  Report Type: Report from Study
  Country: CA (occurrence: CA)
  Receive Date: 20230116
  Receipt Date: 20230227
  Transmission Date: 20230418
  Serious: Yes (Other)
  Sender: FDA-Public Use
  Company Number: CA-002147023-NVSC2023CA005823

PATIENT
  Age: 41 Year
  Sex: Female

DRUGS (2)
  1. ERELZI [Suspect]
     Active Substance: ETANERCEPT-SZZS
     Indication: Ankylosing spondylitis
     Dosage: 50 MG, QW
     Route: 058
     Dates: start: 20221123
  2. ERELZI [Suspect]
     Active Substance: ETANERCEPT-SZZS
     Dosage: 50 MG, QW (LAST INJECTION)
     Route: 058
     Dates: start: 20230103, end: 20230118

REACTIONS (14)
  - Blood pressure diastolic increased [Unknown]
  - Lymphadenopathy [Unknown]
  - Pain in jaw [Unknown]
  - Trismus [Unknown]
  - Somatic symptom disorder [Unknown]
  - Breast pain [Unknown]
  - Extrasystoles [Unknown]
  - Musculoskeletal stiffness [Unknown]
  - Back pain [Unknown]
  - Chest pain [Unknown]
  - Musculoskeletal chest pain [Unknown]
  - Pain in extremity [Unknown]
  - Dyspnoea [Unknown]
  - Drug ineffective [Unknown]
